FAERS Safety Report 10543584 (Version 1)
Quarter: 2014Q4

REPORT INFORMATION
  Report Type: Spontaneous
  Country: US (occurrence: None)
  Receive Date: 20141010
  Receipt Date: 20141010
  Transmission Date: 20150529
  Serious: Yes (Hospitalization)
  Sender: FDA-Public Use
  Company Number: 163-POMAL-14081259

PATIENT
  Age: 60 Year
  Sex: Female
  Weight: 62.14 kg

DRUGS (27)
  1. POMALYST [Suspect]
     Active Substance: POMALIDOMIDE
     Indication: PLASMA CELL MYELOMA
     Dosage: 2 MG, 21 IN 21 D, PO
     Route: 048
     Dates: start: 20140528
  2. ALLERGY RELIEFT(ALLERGY MEDICATION) [Concomitant]
  3. PATANOL(OLOPTADINE HYDROCHLORIDE) [Concomitant]
  4. ZOMETA(ZOEDRONIC ACID) [Concomitant]
  5. BENADRYL ALLERGY [Concomitant]
     Active Substance: DIPHENHYDRAMINE HYDROCHLORIDE
  6. SELENIUM [Concomitant]
     Active Substance: SELENIUM
  7. TEMAZEPAM. [Concomitant]
     Active Substance: TEMAZEPAM
  8. DOK(PERI-COLACE) [Concomitant]
  9. DOXORUBICIN HCL(DOXORUBICIN HYDROCHLORIDE) [Concomitant]
  10. TAMIFLU(OSELTAMIVIR) [Concomitant]
  11. DEPLIN(CALCIUM LEVOMEFOLATE) [Concomitant]
  12. ARSENIC TIROXIDE [Concomitant]
  13. COQ10(UBIDECARENONE) [Concomitant]
  14. TURMERIC [Concomitant]
     Active Substance: TURMERIC
  15. ACIDOPHILUS(LACTOBACILLUS ACIDOPHILUS) [Concomitant]
  16. ACYCLOVIR(ACICLOVIR) [Concomitant]
  17. CALCIUM + VITAMIN D (LEKOVIT CA) [Concomitant]
     Active Substance: CALCIUM\VITAMIN D
  18. L-THYROSINE(TYROSINE) [Concomitant]
  19. PRILOSEC(OMEPRAZOLE) [Concomitant]
  20. TRETINOIN. [Concomitant]
     Active Substance: TRETINOIN
  21. DEXAMETHASONE. [Concomitant]
     Active Substance: DEXAMETHASONE
  22. FLEXERIL(CYCLOBENZAPRINE HYDROCHLORIDE) [Concomitant]
  23. LUTEIN(XANTOFYL) [Concomitant]
  24. METANX [Concomitant]
     Active Substance: LEVOMEFOLATE CALCIUM\METHYLCOBALAMIN\PYRIDOXAL PHOSPHATE ANHYDROUS
  25. ONE-A DAY WOMENS [Concomitant]
  26. SERTRALINE HCL(SERTRALINE HYDROCHLORIDE) [Concomitant]
  27. ZADITOR(KETOTIFEN) [Concomitant]

REACTIONS (1)
  - Diarrhoea [None]

NARRATIVE: CASE EVENT DATE: 20140721
